FAERS Safety Report 9265667 (Version 1)
Quarter: 2013Q2

REPORT INFORMATION
  Report Type: Spontaneous
  Country: FR (occurrence: FR)
  Receive Date: 20130501
  Receipt Date: 20130501
  Transmission Date: 20140414
  Serious: Yes (Hospitalization)
  Sender: FDA-Public Use
  Company Number: FR-ASTRAZENECA-2013SE28615

PATIENT
  Age: 18 Year
  Sex: Male

DRUGS (7)
  1. INEXIUM [Suspect]
     Route: 042
     Dates: start: 20121118, end: 20121125
  2. TAZOCILLINE [Suspect]
     Route: 042
     Dates: start: 20121122, end: 20121123
  3. LYRICA [Suspect]
     Dosage: ONCE/SINGLE ADMINISTRATION
     Route: 048
     Dates: start: 20121117, end: 20121117
  4. COLCHIMAX [Suspect]
     Route: 048
     Dates: start: 20121117, end: 20121117
  5. TRAMADOL [Suspect]
     Route: 048
     Dates: start: 20121117, end: 20121117
  6. AUGMENTIN [Suspect]
     Route: 042
     Dates: start: 20121118, end: 20121121
  7. AMIKACINE MYLAN [Suspect]
     Route: 042
     Dates: start: 20121122, end: 20121123

REACTIONS (3)
  - Eosinophilia [Recovered/Resolved]
  - Rash maculo-papular [Recovered/Resolved]
  - Transaminases increased [Recovered/Resolved]
